FAERS Safety Report 6188187-4 (Version None)
Quarter: 2009Q2

REPORT INFORMATION
  Report Type: 
  Country: None (occurrence: None)
  Receive Date: 20090513
  Receipt Date: 20090508
  Transmission Date: 20091009
  Serious: Yes (Other)
  Sender: FDA-Public Use
  Company Number: GB-ASTRAZENECA-2009GB01076

PATIENT
  Age: 68 Year
  Sex: Female

DRUGS (5)
  1. QUETIAPINE [Suspect]
     Indication: BREAST CANCER
     Route: 048
     Dates: start: 20090217, end: 20090406
  2. VENLAFAXINE HCL [Suspect]
     Indication: DEPRESSION
     Route: 048
     Dates: start: 20090319, end: 20090406
  3. FLUCLOXACILLIN [Concomitant]
     Route: 048
     Dates: start: 20090314, end: 20090320
  4. PENICILLIN V [Concomitant]
     Route: 048
     Dates: start: 20090314, end: 20090320
  5. SANDO-K [Concomitant]
     Route: 048
     Dates: start: 20090401

REACTIONS (2)
  - JAUNDICE [None]
  - LIVER FUNCTION TEST ABNORMAL [None]
